FAERS Safety Report 10903370 (Version 1)
Quarter: 2015Q1

REPORT INFORMATION
  Report Type: Spontaneous
  Country: US (occurrence: None)
  Receive Date: 20150304
  Receipt Date: 20150304
  Transmission Date: 20150721
  Serious: Yes (Hospitalization)
  Sender: FDA-Public Use
  Company Number: None

PATIENT
  Sex: Male
  Weight: 70.9 kg

DRUGS (16)
  1. VIEKIRA PAK [Suspect]
     Active Substance: DASABUVIR\OMBITASVIR\PARITAPREVIR\RITONAVIR
     Indication: HEPATITIS C
     Dosage: VISKIRA PAK 3 TABS     BID    PO
     Route: 048
     Dates: start: 20150111
  2. CALCIUM ACETATE (PHOSLO) [Concomitant]
  3. DIAZEPAM (VALIUM) [Concomitant]
  4. PENTOXIFYLLINE (TRENTAL) [Concomitant]
  5. COPEGUS [Suspect]
     Active Substance: RIBAVIRIN
     Indication: HEPATITIS C
     Route: 048
     Dates: start: 20150121
  6. ERGOCALCIFEROL) [Concomitant]
  7. LABETALOL (NORMODYNE) [Concomitant]
  8. TORSEMIDE (DEMADEX) [Concomitant]
  9. PANTOPRAZOLE (PROTONIX) [Concomitant]
  10. VIT B CMPLX 3-FA-VIT C-BIOTIN (NEPHRO-VITE/RENA-VITT RX) [Concomitant]
  11. OXYCODONE (ROXICODONE) [Concomitant]
  12. AMLODIPINE (NORVASC) [Concomitant]
  13. PREDNISONE (DELTASONE) [Concomitant]
  14. GLIPIZIDE (GLUCOTROL XL) [Concomitant]
  15. LEVOCETIRIZINE (XYZAL) [Concomitant]
  16. LOSARTAN  (COZAAR) [Concomitant]

REACTIONS (4)
  - Diabetes mellitus [None]
  - Dry gangrene [None]
  - Extremity necrosis [None]
  - Peripheral ischaemia [None]

NARRATIVE: CASE EVENT DATE: 20150122
